FAERS Safety Report 8552111 (Version 2)
Quarter: 2013Q2

REPORT INFORMATION
  Report Type: Spontaneous
  Country: US (occurrence: None)
  Receive Date: 20120327
  Receipt Date: 20120709
  Transmission Date: 20140414
  Serious: Yes (Hospitalization)
  Sender: FDA-Public Use
  Company Number: PHHY2011US10686

PATIENT
  Age: 61 Year
  Sex: Female

DRUGS (2)
  1. GLEEVEC [Suspect]
     Indication: GASTROINTESTINAL STROMAL TUMOUR
     Route: 048
     Dates: start: 20101231
  2. NORVASC [Concomitant]

REACTIONS (8)
  - MYOCARDIAL INFARCTION [None]
  - BLOOD PRESSURE INCREASED [None]
  - DIARRHOEA [None]
  - CARDIAC ENZYMES INCREASED [None]
  - ELECTROCARDIOGRAM ABNORMAL [None]
  - Chest discomfort [None]
  - Vomiting [None]
  - Malaise [None]
